FAERS Safety Report 15647970 (Version 2)
Quarter: 2019Q1

REPORT INFORMATION
  Report Type: Spontaneous
  Country: US (occurrence: US)
  Receive Date: 20181122
  Receipt Date: 20190118
  Transmission Date: 20190417
  Serious: Yes (Other)
  Sender: FDA-Public Use
  Company Number: US-ABBVIE-18S-163-2559674-00

PATIENT
  Age: 42 Year
  Sex: Female

DRUGS (7)
  1. ZANTAC [Concomitant]
     Active Substance: RANITIDINE HYDROCHLORIDE
     Indication: GASTROOESOPHAGEAL REFLUX DISEASE
  2. SYNTHROID [Suspect]
     Active Substance: LEVOTHYROXINE SODIUM
     Indication: HYPOTHYROIDISM
     Route: 048
     Dates: start: 2015, end: 201709
  3. NATURE-THROID [Suspect]
     Active Substance: THYROID, PORCINE
     Indication: PRODUCT USED FOR UNKNOWN INDICATION
     Route: 048
     Dates: start: 201709, end: 201808
  4. CLARITIN [Concomitant]
     Active Substance: LORATADINE
     Indication: SEASONAL ALLERGY
  5. SYNTHROID [Suspect]
     Active Substance: LEVOTHYROXINE SODIUM
     Dosage: NEW REFILL IN A MANUFACTURE BOTTLE WHICH SHE PICKED UP ON 17-SEP-2018.
     Route: 065
     Dates: start: 201810
  6. SYNTHROID [Suspect]
     Active Substance: LEVOTHYROXINE SODIUM
     Dosage: ANOTHER BOTTLE OF SYNTHROID WITH A DIFFERENT LOT NUMBER FROM 17-SEP-2018 REFILL BOTTLE.
     Route: 065
     Dates: start: 20181030
  7. SYNTHROID [Suspect]
     Active Substance: LEVOTHYROXINE SODIUM
     Route: 048
     Dates: start: 201808

REACTIONS (22)
  - Product quality issue [Not Recovered/Not Resolved]
  - Tri-iodothyronine decreased [Not Recovered/Not Resolved]
  - Therapeutic response changed [Unknown]
  - Alopecia [Not Recovered/Not Resolved]
  - Disorganised speech [Recovered/Resolved]
  - Agitation [Unknown]
  - Drug ineffective [Unknown]
  - Hypothyroidism [Unknown]
  - Feeling jittery [Recovered/Resolved]
  - Gallbladder polyp [Recovered/Resolved]
  - Thinking abnormal [Recovered/Resolved]
  - Feeling jittery [Unknown]
  - Agitation [Recovered/Resolved]
  - Drug intolerance [Unknown]
  - Disorganised speech [Unknown]
  - Thyroxine decreased [Recovered/Resolved]
  - Blood thyroid stimulating hormone increased [Recovered/Resolved]
  - Gallbladder polyp [Recovered/Resolved]
  - Blood thyroid stimulating hormone abnormal [Not Recovered/Not Resolved]
  - Aphasia [Recovered/Resolved]
  - Intentional product misuse [Unknown]
  - Thinking abnormal [Unknown]

NARRATIVE: CASE EVENT DATE: 2015
